FAERS Safety Report 25939780 (Version 1)
Quarter: 2025Q4

REPORT INFORMATION
  Report Type: Report from Study
  Country: PK (occurrence: PK)
  Receive Date: 20251020
  Receipt Date: 20251020
  Transmission Date: 20260117
  Serious: Yes (Death, Other)
  Sender: ROCHE
  Company Number: PK-ROCHE-10000412435

PATIENT
  Age: 43 Year
  Sex: Male

DRUGS (1)
  1. RITUXIMAB [Suspect]
     Active Substance: RITUXIMAB
     Indication: Follicular lymphoma
     Route: 042
     Dates: start: 20250513

REACTIONS (9)
  - Death [Fatal]
  - Lymphoma transformation [Unknown]
  - Metastasis [Unknown]
  - Dyspnoea [Unknown]
  - Pyrexia [Unknown]
  - Haemoptysis [Unknown]
  - Decreased appetite [Unknown]
  - Infection [Unknown]
  - Immunosuppression [Unknown]

NARRATIVE: CASE EVENT DATE: 20250908
